FAERS Safety Report 4722217-9 (Version None)
Quarter: 2005Q3

REPORT INFORMATION
  Report Type: 
  Country: None (occurrence: None)
  Receive Date: 20050722
  Receipt Date: 20040907
  Transmission Date: 20060218
  Serious: No
  Sender: FDA-Public Use
  Company Number: US-GLAXOSMITHKLINE-A0524752A

PATIENT
  Age: 50 Year
  Sex: Male

DRUGS (7)
  1. AVANDIA [Suspect]
     Dosage: 8MG PER DAY
     Route: 048
  2. NEURONTIN [Concomitant]
  3. ZOLOFT [Concomitant]
  4. BENICAR [Concomitant]
  5. LIPITOR [Concomitant]
  6. GLUCOTROL [Concomitant]
  7. HUMULIN 70/30 [Concomitant]

REACTIONS (1)
  - DRUG INEFFECTIVE [None]
